FAERS Safety Report 21759670 (Version 1)
Quarter: 2022Q4

REPORT INFORMATION
  Report Type: Spontaneous
  Country: US (occurrence: None)
  Receive Date: 20221220
  Receipt Date: 20221220
  Transmission Date: 20230112
  Serious: Yes (Hospitalization)
  Sender: FDA-Public Use
  Company Number: None

PATIENT
  Sex: Male

DRUGS (1)
  1. ABIRATERONE [Suspect]
     Active Substance: ABIRATERONE
     Dosage: FREQUENCY : DAILY;?
     Route: 048

REACTIONS (10)
  - Loss of consciousness [None]
  - Fall [None]
  - Therapy interrupted [None]
  - Hypertension [None]
  - Balance disorder [None]
  - Dizziness [None]
  - Tremor [None]
  - Bone pain [None]
  - Myalgia [None]
  - Off label use [None]
